FAERS Safety Report 14659775 (Version 1)
Quarter: 2018Q1

REPORT INFORMATION
  Report Type: Spontaneous
  Country: CN (occurrence: CN)
  Receive Date: 20180320
  Receipt Date: 20180320
  Transmission Date: 20180509
  Serious: Yes (Hospitalization)
  Sender: FDA-Public Use
  Company Number: CN-NOVOPROD-590251

PATIENT
  Age: 84 Year
  Sex: Male
  Weight: 75 kg

DRUGS (3)
  1. NOVOMIX 30 FLEXPEN [Suspect]
     Active Substance: INSULIN ASPART
     Dosage: 16 U, QD(10 U IN THE MORNING AND 6 U IN THE EVENING)
     Route: 058
  2. NOVOMIX 30 FLEXPEN [Suspect]
     Active Substance: INSULIN ASPART
     Dosage: 12 U, QD( 7 U IN THE MORNING AND 5 U IN THE EVENING)
     Route: 058
  3. NOVOMIX 30 FLEXPEN [Suspect]
     Active Substance: INSULIN ASPART
     Indication: DIABETES MELLITUS
     Dosage: 18 U, BID(12 U IN THE MORNING AND 6 U IN THE EVENING)
     Route: 058
     Dates: start: 20160505

REACTIONS (2)
  - Decreased appetite [Unknown]
  - Hypoglycaemic encephalopathy [Not Recovered/Not Resolved]

NARRATIVE: CASE EVENT DATE: 20170804
